FAERS Safety Report 6137550-6 (Version None)
Quarter: 2009Q1

REPORT INFORMATION
  Report Type: 
  Country: None (occurrence: None)
  Receive Date: 20090327
  Receipt Date: 20090311
  Transmission Date: 20090719
  Serious: Yes (Hospitalization)
  Sender: FDA-Public Use
  Company Number: 8040936

PATIENT
  Age: 51 Year
  Sex: Female
  Weight: 64.09 kg

DRUGS (5)
  1. CIMZIA [Suspect]
     Indication: CROHN'S DISEASE
     Dosage: 200 MO 1/2W SC
     Route: 058
     Dates: start: 20080601, end: 20081223
  2. LEVAQUIN [Concomitant]
  3. CIMZIA [Concomitant]
  4. ZYRTEC [Concomitant]
  5. ATENOLOL [Concomitant]

REACTIONS (2)
  - NEPHROTIC SYNDROME [None]
  - RENAL IMPAIRMENT [None]
